FAERS Safety Report 6303504-X (Version None)
Quarter: 2009Q3

REPORT INFORMATION
  Report Type: 
  Country: None (occurrence: None)
  Receive Date: 20090810
  Receipt Date: 20090729
  Transmission Date: 20100115
  Serious: Yes (Hospitalization)
  Sender: FDA-Public Use
  Company Number: DE-SANOFI-SYNTHELABO-A01200906864

PATIENT
  Sex: Female
  Weight: 71 kg

DRUGS (5)
  1. ISCOVER [Suspect]
     Indication: ANTIPLATELET THERAPY
     Dosage: 300 MG ONCE
     Route: 048
     Dates: start: 20090513, end: 20090513
  2. NEBIVOLOL [Concomitant]
     Indication: DRUG USE FOR UNKNOWN INDICATION
     Dosage: UNK
     Route: 065
  3. PLAVIX [Suspect]
     Indication: ANTIPLATELET THERAPY
     Route: 048
     Dates: start: 20090514
  4. PROTHYRID [Concomitant]
     Indication: HYPOTHYROIDISM
     Dosage: 3/4 TABLETS DAILY
     Route: 048
     Dates: start: 20040101
  5. ASPIRIN [Suspect]
     Indication: CEREBRAL INFARCTION
     Route: 065
     Dates: start: 20081201

REACTIONS (3)
  - CHEST DISCOMFORT [None]
  - CHEST PAIN [None]
  - DYSPNOEA EXERTIONAL [None]
